FAERS Safety Report 4840845-7 (Version None)
Quarter: 2005Q4

REPORT INFORMATION
  Report Type: 
  Country: None (occurrence: None)
  Receive Date: 20051130
  Receipt Date: 20050801
  Transmission Date: 20060501
  Serious: No
  Sender: FDA-Public Use
  Company Number: US-BRISTOL-MYERS SQUIBB COMPANY-13058110

PATIENT
  Sex: Female

DRUGS (4)
  1. AVALIDE [Suspect]
     Indication: HYPERTENSION
     Dosage: DURATION OF THERAPY:  ^A FEW MONTHS^
     Dates: start: 20050101
  2. AVANDIA [Concomitant]
  3. SYNTHROID [Concomitant]
  4. ZOCOR [Concomitant]

REACTIONS (1)
  - PHOTOSENSITIVITY REACTION [None]
